FAERS Safety Report 10578826 (Version 1)
Quarter: 2014Q4

REPORT INFORMATION
  Report Type: Spontaneous
  Country: JP (occurrence: JP)
  Receive Date: 20141112
  Receipt Date: 20141112
  Transmission Date: 20150529
  Serious: Yes (Life-Threatening)
  Sender: FDA-Public Use
  Company Number: JP-009507513-1411JPN004457

PATIENT
  Age: 71 Year
  Sex: Female

DRUGS (2)
  1. TRYPTANOL [Suspect]
     Active Substance: AMITRIPTYLINE
     Route: 048
  2. PYRETHIA [Concomitant]
     Active Substance: PROMETHAZINE HYDROCHLORIDE
     Route: 048

REACTIONS (1)
  - Cardiac failure [Unknown]
